FAERS Safety Report 5839370-6 (Version None)
Quarter: 2008Q3

REPORT INFORMATION
  Report Type: 
  Country: None (occurrence: None)
  Receive Date: 20080806
  Receipt Date: 20080721
  Transmission Date: 20090109
  Serious: Yes (Death)
  Sender: FDA-Public Use
  Company Number: US024089

PATIENT
  Sex: Male

DRUGS (1)
  1. ACTIQ [Suspect]
     Dosage: 4-5 LOZENGES PER DAY BUCCAL
     Route: 002

REACTIONS (2)
  - APPLICATION SITE REACTION [None]
  - GINGIVAL PAIN [None]
